FAERS Safety Report 7636183-X (Version None)
Quarter: 2011Q3

REPORT INFORMATION
  Report Type: 
  Country: None (occurrence: None)
  Receive Date: 20110726
  Receipt Date: 20110712
  Transmission Date: 20111222
  Serious: Yes (Other)
  Sender: FDA-Public Use
  Company Number: JP-PFIZER INC-2011167286

PATIENT
  Age: 78 Year
  Sex: Male
  Weight: 75.1 kg

DRUGS (7)
  1. LASIX [Concomitant]
     Indication: HYPERTENSION
     Dosage: UNK
     Route: 048
  2. DIOVAN [Concomitant]
     Indication: HYPERTENSION
     Dosage: UNK
     Route: 048
  3. ROCALTROL [Concomitant]
     Indication: GLOMERULONEPHRITIS CHRONIC
     Dosage: UNK
  4. ATELEC [Concomitant]
     Indication: HYPERTENSION
     Dosage: UNK
     Route: 048
  5. ATORVASTATIN CALCIUM [Suspect]
     Indication: HYPERCHOLESTEROLAEMIA
     Dosage: 5 MG, 1X/DAY
     Route: 048
     Dates: start: 20101125
  6. WARFARIN [Concomitant]
     Indication: CEREBRAL INFARCTION
     Dosage: UNK
     Route: 048
     Dates: start: 20110228
  7. CALCIUM CARBONATE [Concomitant]
     Indication: GLOMERULONEPHRITIS CHRONIC
     Dosage: UNK

REACTIONS (1)
  - GLOMERULONEPHRITIS CHRONIC [None]
